FAERS Safety Report 20950188 (Version 2)
Quarter: 2022Q3

REPORT INFORMATION
  Report Type: Report from Study
  Country: FR (occurrence: FR)
  Receive Date: 20220613
  Receipt Date: 20220706
  Transmission Date: 20221027
  Serious: Yes (Other)
  Sender: FDA-Public Use
  Company Number: FR-BRISTOL-MYERS SQUIBB COMPANY-2022-056415

PATIENT
  Sex: Male
  Weight: 75 kg

DRUGS (37)
  1. LENALIDOMIDE [Suspect]
     Active Substance: LENALIDOMIDE
     Indication: Diffuse large B-cell lymphoma
     Route: 065
     Dates: start: 20171031, end: 20181001
  2. TAFASITAMAB [Suspect]
     Active Substance: TAFASITAMAB
     Indication: Diffuse large B-cell lymphoma
     Route: 065
     Dates: start: 20171031, end: 20220524
  3. BACTRIM [Concomitant]
     Active Substance: SULFAMETHOXAZOLE\TRIMETHOPRIM
     Indication: Infection
     Route: 048
     Dates: start: 20171031
  4. IMOVANE [Concomitant]
     Active Substance: ZOPICLONE
     Indication: Sleep disorder
     Dosage: PRN
     Route: 048
     Dates: start: 20171114
  5. ACUPAN [Concomitant]
     Active Substance: NEFOPAM HYDROCHLORIDE
     Indication: Spinal osteoarthritis
     Dosage: PRN
     Dates: start: 20171128
  6. METHYLPREDNISOLONE ACETATE [Concomitant]
     Active Substance: METHYLPREDNISOLONE ACETATE
     Indication: Chronic obstructive pulmonary disease
     Dosage: 5 DAYS PER MONTH
     Route: 048
     Dates: start: 20180914
  7. ATROVENT [Concomitant]
     Active Substance: IPRATROPIUM BROMIDE
     Indication: Chronic obstructive pulmonary disease
     Dosage: 1 PUFF
     Route: 055
     Dates: start: 20180914
  8. SPIRIVA [Concomitant]
     Active Substance: TIOTROPIUM BROMIDE MONOHYDRATE
     Indication: Chronic obstructive pulmonary disease
     Dosage: 1 CAPSULE
     Route: 055
     Dates: start: 20181226
  9. XARELTO [Concomitant]
     Active Substance: RIVAROXABAN
     Indication: Atrial fibrillation
     Route: 048
     Dates: start: 20190205
  10. PRIVIGEN [Concomitant]
     Active Substance: HUMAN IMMUNOGLOBULIN G
     Indication: Hypogammaglobulinaemia
     Route: 042
     Dates: start: 20191112
  11. ENTRESTO [Concomitant]
     Active Substance: SACUBITRIL\VALSARTAN
     Indication: Cardiac failure
     Route: 048
     Dates: start: 20190723
  12. POTASSIUM CHLORIDE [Concomitant]
     Active Substance: POTASSIUM CHLORIDE
     Indication: Cardiac failure
     Route: 048
     Dates: start: 20190308
  13. ALLOPURINOL [Concomitant]
     Active Substance: ALLOPURINOL
     Indication: Gout
     Route: 048
     Dates: start: 20191022
  14. SYMBICORT [Concomitant]
     Active Substance: BUDESONIDE\FORMOTEROL FUMARATE DIHYDRATE
     Indication: Chronic obstructive pulmonary disease
     Dosage: 2 PUFFS
     Route: 055
     Dates: start: 201501
  15. FUROSEMIDE SODIUM [Concomitant]
     Active Substance: FUROSEMIDE SODIUM
     Indication: Atrial fibrillation
     Route: 048
     Dates: start: 2008, end: 20171128
  16. FUROSEMIDE SODIUM [Concomitant]
     Active Substance: FUROSEMIDE SODIUM
     Indication: Oedema peripheral
     Route: 048
     Dates: start: 20180612, end: 20180806
  17. FUROSEMIDE SODIUM [Concomitant]
     Active Substance: FUROSEMIDE SODIUM
     Dates: start: 20171207, end: 20180122
  18. FUROSEMIDE SODIUM [Concomitant]
     Active Substance: FUROSEMIDE SODIUM
     Dates: start: 20180807, end: 20181002
  19. FUROSEMIDE SODIUM [Concomitant]
     Active Substance: FUROSEMIDE SODIUM
     Dates: start: 20180123, end: 20180611
  20. FUROSEMIDE SODIUM [Concomitant]
     Active Substance: FUROSEMIDE SODIUM
     Dates: start: 20181003, end: 20181210
  21. FUROSEMIDE SODIUM [Concomitant]
     Active Substance: FUROSEMIDE SODIUM
     Dates: start: 20181211
  22. FUROSEMIDE SODIUM [Concomitant]
     Active Substance: FUROSEMIDE SODIUM
     Route: 048
     Dates: start: 20171128, end: 20171207
  23. FUROSEMIDE SODIUM [Concomitant]
     Active Substance: FUROSEMIDE SODIUM
     Route: 048
     Dates: start: 20171207, end: 20171209
  24. TRAMADOL [Concomitant]
     Active Substance: TRAMADOL
     Indication: Arthritis
     Dosage: PRN
     Route: 048
     Dates: start: 2015
  25. TRAMADOL [Concomitant]
     Active Substance: TRAMADOL
     Indication: Hyperaesthesia
     Route: 048
     Dates: start: 20180316, end: 20180319
  26. TRAMADOL [Concomitant]
     Active Substance: TRAMADOL
     Indication: Rib fracture
     Route: 048
     Dates: start: 20181001
  27. PRIMPERAN [Concomitant]
     Active Substance: METOCLOPRAMIDE HYDROCHLORIDE
     Indication: Prophylaxis of nausea and vomiting
     Dosage: PRN
     Route: 048
     Dates: start: 20171031
  28. ONDANSETRON [Concomitant]
     Active Substance: ONDANSETRON
     Indication: Prophylaxis of nausea and vomiting
     Dosage: PRN
     Route: 048
     Dates: start: 20171031
  29. VALACYCLOVIR HYDROCHLORIDE [Concomitant]
     Active Substance: VALACYCLOVIR HYDROCHLORIDE
     Indication: Infection
     Route: 048
     Dates: start: 20171031
  30. COLCHICINE [Concomitant]
     Active Substance: COLCHICINE
     Indication: Gout
     Route: 048
     Dates: start: 20191022
  31. COLCHICINE [Concomitant]
     Active Substance: COLCHICINE
  32. COLCHICINE [Concomitant]
     Active Substance: COLCHICINE
  33. COVID-19 VACCINE [Concomitant]
     Indication: COVID-19 prophylaxis
     Route: 030
     Dates: start: 20210813
  34. COVID-19 VACCINE [Concomitant]
     Dates: start: 20220209
  35. CASIRIVIMAB\IMDEVIMAB [Concomitant]
     Active Substance: CASIRIVIMAB\IMDEVIMAB
     Indication: COVID-19 prophylaxis
     Route: 058
     Dates: start: 20211221
  36. CALCIUM\CHOLECALCIFEROL [Concomitant]
     Active Substance: CALCIUM\CHOLECALCIFEROL
     Indication: Supplementation therapy
     Route: 048
     Dates: start: 20220215
  37. MAGNE B [Concomitant]
     Indication: Mineral supplementation
     Route: 048

REACTIONS (1)
  - Prostate cancer [Not Recovered/Not Resolved]

NARRATIVE: CASE EVENT DATE: 20210728
